FAERS Safety Report 7953616 (Version 2)
Quarter: 2013Q4

REPORT INFORMATION
  Report Type: Report from Study
  Country: US (occurrence: US)
  Receive Date: 20110520
  Receipt Date: 20131125
  Transmission Date: 20140711
  Serious: No
  Sender: FDA-Public Use
  Company Number: US-ASTRAZENECA-2011SE12937

PATIENT
  Age: 72 Year
  Sex: Female

DRUGS (2)
  1. VIMOVO [Suspect]
     Indication: RHEUMATOID ARTHRITIS
     Dosage: 500 MG/20 MG, TWICE A DAY
     Route: 048
  2. VIMOVO [Suspect]
     Indication: RHEUMATOID ARTHRITIS
     Dosage: 500 MG/20 MG, TWICE A DAY
     Route: 048

REACTIONS (4)
  - Flatulence [Unknown]
  - Malaise [Not Recovered/Not Resolved]
  - Drug ineffective [Unknown]
  - Intentional drug misuse [Not Recovered/Not Resolved]
